FAERS Safety Report 16875409 (Version 6)
Quarter: 2020Q2

REPORT INFORMATION
  Report Type: Spontaneous
  Country: JP (occurrence: JP)
  Receive Date: 20191002
  Receipt Date: 20200416
  Transmission Date: 20200713
  Serious: Yes (Death, Other)
  Sender: FDA-Public Use
  Company Number: JP-ROCHE-2422310

PATIENT
  Age: 68 Year
  Sex: Male
  Weight: 78 kg

DRUGS (8)
  1. TECENTRIQ [Suspect]
     Active Substance: ATEZOLIZUMAB
     Indication: LUNG ADENOCARCINOMA
     Route: 041
     Dates: start: 20190712, end: 20190820
  2. PACLITAXEL. [Concomitant]
     Active Substance: PACLITAXEL
     Indication: LUNG ADENOCARCINOMA
     Route: 041
     Dates: start: 20190712, end: 20190820
  3. AVASTIN [Suspect]
     Active Substance: BEVACIZUMAB
     Route: 041
     Dates: start: 20190820, end: 20190820
  4. AVASTIN [Suspect]
     Active Substance: BEVACIZUMAB
     Indication: LUNG ADENOCARCINOMA
     Route: 041
     Dates: start: 20190712, end: 20190712
  5. CARBOPLATIN. [Concomitant]
     Active Substance: CARBOPLATIN
     Indication: LUNG ADENOCARCINOMA
     Route: 041
     Dates: start: 20190712, end: 20190820
  6. GLYCOPYRRONIUM BROMIDE;INDACATEROL MALEATE [Concomitant]
     Active Substance: GLYCOPYRROLATE\INDACATEROL MALEATE
     Route: 065
     Dates: start: 20190724
  7. LYRICA [Concomitant]
     Active Substance: PREGABALIN
     Route: 048
     Dates: start: 20190727
  8. MIKELUNA [Concomitant]
     Dosage: BEGINNING OF DOSAGE TIME (ON ADMISSION-) DOSAGE IS UNCERTAIN.
     Route: 047

REACTIONS (6)
  - Pyrexia [Unknown]
  - Glomerulonephritis acute [Fatal]
  - Respiratory failure [Fatal]
  - Large intestine perforation [Fatal]
  - Sepsis [Fatal]
  - Neutrophil count decreased [Unknown]

NARRATIVE: CASE EVENT DATE: 20190722
